FAERS Safety Report 15622713 (Version 2)
Quarter: 2018Q4

REPORT INFORMATION
  Report Type: Report from Study
  Country: US (occurrence: US)
  Receive Date: 20181115
  Receipt Date: 20181227
  Transmission Date: 20190205
  Serious: Yes (Hospitalization)
  Sender: FDA-Public Use
  Company Number: US-ACTELION-A-NJ2018-178611

PATIENT
  Age: 63 Year
  Sex: Female

DRUGS (8)
  1. UPTRAVI [Suspect]
     Active Substance: SELEXIPAG
     Dosage: 1000 MCG, BID
     Route: 048
     Dates: start: 20180817
  2. UPTRAVI [Suspect]
     Active Substance: SELEXIPAG
     Dosage: 800 MCG, BID
     Route: 048
  3. FLECAINIDE [Concomitant]
     Active Substance: FLECAINIDE
  4. UPTRAVI [Suspect]
     Active Substance: SELEXIPAG
     Indication: PULMONARY ARTERIAL HYPERTENSION
     Dosage: 1600 MCG, BID
     Route: 048
  5. ELIQUIS [Concomitant]
     Active Substance: APIXABAN
  6. UPTRAVI [Suspect]
     Active Substance: SELEXIPAG
     Dosage: 1400 MCG, BID
     Route: 048
  7. UPTRAVI [Suspect]
     Active Substance: SELEXIPAG
     Dosage: 600 MCG, BID
     Route: 048
     Dates: start: 20180814
  8. METOPROLOL. [Concomitant]
     Active Substance: METOPROLOL

REACTIONS (11)
  - Blood pressure abnormal [Unknown]
  - Urinary tract infection [Unknown]
  - Inappropriate schedule of product administration [Unknown]
  - Thrombosis [Unknown]
  - Heart rate increased [Unknown]
  - Heart rate abnormal [Unknown]
  - Pleural effusion [Unknown]
  - Cardiac ablation [Unknown]
  - Headache [Unknown]
  - Haematochezia [Unknown]
  - Weight increased [Unknown]

NARRATIVE: CASE EVENT DATE: 20180903
